FAERS Safety Report 8234095-4 (Version None)
Quarter: 2012Q1

REPORT INFORMATION
  Report Type: 
  Country: None (occurrence: None)
  Receive Date: 20120326
  Receipt Date: 20120326
  Transmission Date: 20120608
  Serious: Yes (Hospitalization, Other)
  Sender: FDA-Public Use
  Company Number: None

PATIENT
  Age: 36 Year
  Sex: Female
  Weight: 62.595 kg

DRUGS (2)
  1. RELPAX [Suspect]
     Indication: MIGRAINE
     Dosage: 40MG
     Route: 048
     Dates: start: 20120131, end: 20120314
  2. RELPAX [Concomitant]
     Dosage: 40MG
     Route: 048
     Dates: start: 20120314, end: 20120324

REACTIONS (9)
  - DYSARTHRIA [None]
  - MUSCLE TIGHTNESS [None]
  - ASTHENIA [None]
  - COORDINATION ABNORMAL [None]
  - PARAESTHESIA [None]
  - HYPOTENSION [None]
  - DIARRHOEA [None]
  - CONSTIPATION [None]
  - VIITH NERVE PARALYSIS [None]
